FAERS Safety Report 15330445 (Version 1)
Quarter: 2018Q4

REPORT INFORMATION
  Report Type: Spontaneous
  Country: ZA (occurrence: ZA)
  Receive Date: 20180829
  Receipt Date: 20180829
  Transmission Date: 20190204
  Serious: Yes (Hospitalization)
  Sender: FDA-Public Use
  Company Number: ZA-PFIZER INC-2018345427

PATIENT
  Age: 79 Year
  Sex: Female

DRUGS (6)
  1. CELEBREX [Suspect]
     Active Substance: CELECOXIB
     Dosage: 200 MG, UNK
  2. FERROUS SULPHATE [FERROUS SULFATE] [Suspect]
     Active Substance: FERROUS SULFATE
     Dosage: 75 MG, UNK
  3. LIPOGEN [ASCORBIC ACID;CHOLINE BITARTRATE;CYANOCOBALAMIN;INOSITOL;NICO [Suspect]
     Active Substance: CHOLINE\INOSITOL\VITAMINS
     Dosage: 10 MG, UNK
  4. METHOTREXATE SODIUM. [Suspect]
     Active Substance: METHOTREXATE SODIUM
     Dosage: 2.5 MG, UNK
  5. FOLIC ACID. [Suspect]
     Active Substance: FOLIC ACID
     Dosage: 5 MG, UNK
  6. PREXUM PLUS [INDAPAMIDE;PERINDOPRIL] [Suspect]
     Active Substance: INDAPAMIDE\PERINDOPRIL
     Dosage: 5/1.25 MG

REACTIONS (1)
  - Ear disorder [Unknown]
